FAERS Safety Report 7373697-4 (Version None)
Quarter: 2011Q1

REPORT INFORMATION
  Report Type: 
  Country: None (occurrence: None)
  Receive Date: 20110325
  Receipt Date: 20110311
  Transmission Date: 20110831
  Serious: Yes (Hospitalization)
  Sender: FDA-Public Use
  Company Number: PHHY2011JP17123

PATIENT
  Sex: Male

DRUGS (5)
  1. LOXONIN [Concomitant]
     Route: 048
  2. FAMVIR [Suspect]
     Indication: HERPES ZOSTER
     Dosage: 500 MG ONE TIME DOSE, DAILY DOSE 1500 MG
     Route: 048
     Dates: start: 20110228, end: 20110228
  3. METHYCOBAL [Concomitant]
     Route: 048
  4. ALFAROL [Concomitant]
     Route: 048
  5. MUCOSTA [Concomitant]
     Route: 048

REACTIONS (4)
  - REFLEXES ABNORMAL [None]
  - DRUG ADMINISTRATION ERROR [None]
  - MYOCLONUS [None]
  - DRUG LEVEL INCREASED [None]
